FAERS Safety Report 14636796 (Version 1)
Quarter: 2018Q1

REPORT INFORMATION
  Report Type: Spontaneous
  Country: US (occurrence: US)
  Receive Date: 20180314
  Receipt Date: 20180314
  Transmission Date: 20180509
  Serious: No
  Sender: FDA-Public Use
  Company Number: US-PURDUE-USA-2017-0142194

PATIENT
  Age: 25 Year
  Sex: Male

DRUGS (1)
  1. OXYCODONE/ ACETAMINOPHEN TABLETS [Suspect]
     Active Substance: ACETAMINOPHEN\OXYCODONE HYDROCHLORIDE
     Indication: PAIN
     Dosage: 1 TABLET, TID
     Route: 048
     Dates: start: 201705, end: 201711

REACTIONS (1)
  - Inadequate analgesia [Recovered/Resolved]

NARRATIVE: CASE EVENT DATE: 201705
